FAERS Safety Report 5717670-8 (Version None)
Quarter: 2008Q2

REPORT INFORMATION
  Report Type: 
  Country: None (occurrence: None)
  Receive Date: 20080425
  Receipt Date: 20080414
  Transmission Date: 20081010
  Serious: Yes (Other)
  Sender: FDA-Public Use
  Company Number: RO-WYE-H03777808

PATIENT
  Sex: Male

DRUGS (5)
  1. CORDARONE [Suspect]
     Indication: ATRIAL FIBRILLATION
     Route: 048
     Dates: start: 20071001
  2. SIMVASTATIN [Concomitant]
     Indication: DYSLIPIDAEMIA
     Dosage: 20 MG
     Route: 048
     Dates: start: 20060101
  3. TROMBOSTOP [Concomitant]
     Indication: ATRIAL FIBRILLATION
     Dosage: 2 MG
     Route: 048
     Dates: start: 20071001
  4. PRESTARIUM [Concomitant]
     Indication: HYPERTENSION
     Dosage: 5 MG
     Route: 048
     Dates: start: 20060101
  5. PREDUCTAL [Concomitant]
     Indication: ISCHAEMIA
     Route: 048
     Dates: start: 20071001

REACTIONS (1)
  - SYSTEMIC LUPUS ERYTHEMATOSUS [None]
